FAERS Safety Report 6314661-3 (Version None)
Quarter: 2009Q3

REPORT INFORMATION
  Report Type: 
  Country: None (occurrence: None)
  Receive Date: 20090817
  Receipt Date: 20090817
  Transmission Date: 20100115
  Serious: Yes (Other)
  Sender: FDA-Public Use
  Company Number: None

PATIENT
  Sex: Male
  Weight: 73.4827 kg

DRUGS (5)
  1. FINAFLEX 550-XD RD LABS [Suspect]
     Indication: SUPPLEMENTATION THERAPY
     Dosage: 1 BID PO
     Route: 048
     Dates: start: 20090701, end: 20090731
  2. REVOLUTION PCT RD LABS [Suspect]
     Dosage: 2-4 HS PO
     Route: 048
  3. LEXIVA [Concomitant]
  4. RITONAVIR [Concomitant]
  5. TRUVADA [Concomitant]

REACTIONS (4)
  - BLOOD CHOLESTEROL INCREASED [None]
  - LOW DENSITY LIPOPROTEIN INCREASED [None]
  - TOTAL CHOLESTEROL/HDL RATIO DECREASED [None]
  - WEIGHT INCREASED [None]
